FAERS Safety Report 5224060-3 (Version None)
Quarter: 2007Q1

REPORT INFORMATION
  Report Type: 
  Country: None (occurrence: None)
  Receive Date: 20070130
  Receipt Date: 20070124
  Transmission Date: 20070707
  Serious: Yes (Other)
  Sender: FDA-Public Use
  Company Number: 2007UW00139

PATIENT
  Age: 77 Year
  Sex: Female
  Weight: 120 kg

DRUGS (10)
  1. PULMICORT [Suspect]
     Indication: ASTHMA
     Route: 055
     Dates: start: 20030510
  2. LISINOPRIL [Concomitant]
  3. DUONEB [Concomitant]
     Dates: start: 20030430
  4. PROTONIX [Concomitant]
  5. ASPIRIN [Concomitant]
  6. COMBIVENT [Concomitant]
     Dates: start: 20030331
  7. AZMACORT [Concomitant]
     Dates: start: 20030529
  8. RHINOCORT [Concomitant]
     Route: 045
     Dates: start: 20040405
  9. NASONEX [Concomitant]
  10. DEPO-MEDROL [Concomitant]

REACTIONS (3)
  - ARTHRALGIA [None]
  - BONE DISORDER [None]
  - OSTEOARTHRITIS [None]
